FAERS Safety Report 5457711-9 (Version None)
Quarter: 2007Q3

REPORT INFORMATION
  Report Type: 
  Country: None (occurrence: None)
  Receive Date: 20070918
  Receipt Date: 20070314
  Transmission Date: 20080115
  Serious: Yes (Hospitalization)
  Sender: FDA-Public Use
  Company Number: US-ASTRAZENECA-2007UW04926

PATIENT
  Age: 48 Year
  Sex: Male

DRUGS (9)
  1. SEROQUEL [Suspect]
     Indication: SCHIZOPHRENIA
     Route: 048
     Dates: start: 20020101, end: 20030101
  2. SEROQUEL [Suspect]
     Indication: DEPRESSION
     Route: 048
     Dates: start: 20020101, end: 20030101
  3. ZYPREXA [Suspect]
  4. DEPAKOTE [Concomitant]
  5. AMBIEN [Concomitant]
  6. WELLBUTRIN [Concomitant]
  7. BUSPAR [Concomitant]
  8. NEURONTIN [Concomitant]
  9. ARICEPT [Concomitant]

REACTIONS (3)
  - DIABETES MELLITUS [None]
  - DIZZINESS [None]
  - WEIGHT INCREASED [None]
